FAERS Safety Report 10763845 (Version 13)
Quarter: 2016Q1

REPORT INFORMATION
  Report Type: Spontaneous
  Country: US (occurrence: US)
  Receive Date: 20150204
  Receipt Date: 20160108
  Transmission Date: 20160525
  Serious: Yes (Death, Hospitalization, Other)
  Sender: FDA-Public Use
  Company Number: US-ACTELION-A-US2015-112090

PATIENT
  Age: 19 Year
  Sex: Female

DRUGS (8)
  1. CELLCEPT [Concomitant]
     Active Substance: MYCOPHENOLATE MOFETIL\MYCOPHENOLATE MOFETIL HYDROCHLORIDE
     Dosage: 1500 MG, BID
  2. MARIJUANA [Concomitant]
     Active Substance: CANNABIS SATIVA SUBSP. INDICA TOP
  3. VELETRI [Suspect]
     Active Substance: EPOPROSTENOL
     Dosage: 30.45 NG/KG, PER MIN
     Route: 042
     Dates: start: 20120224
  4. LETAIRIS [Concomitant]
     Active Substance: AMBRISENTAN
     Dosage: UNK
  5. COUMADIN [Concomitant]
     Active Substance: WARFARIN SODIUM
     Dosage: UNK
  6. PROGRAF [Concomitant]
     Active Substance: TACROLIMUS\TACROLIMUS ANHYDROUS
     Dosage: 2 MG, BID
  7. VELETRI [Suspect]
     Active Substance: EPOPROSTENOL
     Indication: PULMONARY ARTERIAL HYPERTENSION
     Dosage: 35 NG/KG, PER MIN
     Route: 042
     Dates: end: 20151229
  8. ADCIRCA [Concomitant]
     Active Substance: TADALAFIL
     Dosage: UNK

REACTIONS (15)
  - Respiratory rate increased [Unknown]
  - Lupus nephritis [Unknown]
  - Proteinuria [Unknown]
  - Dyspnoea [Unknown]
  - Respiratory syncytial virus infection [Unknown]
  - Death [Fatal]
  - Circulatory collapse [Unknown]
  - Hypertension [Unknown]
  - Thrombocytopenia [Unknown]
  - Influenza [Unknown]
  - Urinary tract infection [Unknown]
  - Panic attack [Unknown]
  - Pharyngitis streptococcal [Unknown]
  - Systemic lupus erythematosus [Unknown]
  - Chest pain [Unknown]

NARRATIVE: CASE EVENT DATE: 20150125
